FAERS Safety Report 9000918 (Version 1)
Quarter: 2012Q4

REPORT INFORMATION
  Report Type: Spontaneous
  Country: GB (occurrence: None)
  Receive Date: 20121226
  Receipt Date: 20121226
  Transmission Date: 20130627
  Serious: Yes (Other)
  Sender: FDA-Public Use
  Company Number: AUR-APL-2012-05460

PATIENT
  Age: 35 Year
  Sex: Female

DRUGS (4)
  1. GABAPENTIN (GABAPENTIN) [Suspect]
     Indication: BACK PAIN
     Dates: start: 20120929, end: 20121010
  2. QUETIAPINE (QUETIAPINE) (QUETIAPINE) [Suspect]
     Indication: INSOMNIA
     Dates: start: 2007
  3. VENLAFAXINE (VENLAFAXINE) [Suspect]
     Indication: MOOD DISORDER NOS
     Dates: start: 2007
  4. VITAMIN B6 (PYRIDOXINE HYDROCHLORIDE) [Suspect]
     Indication: DRUG USE FOR UNKNOWN INDICATION
     Dates: start: 20121010, end: 20121101

REACTIONS (5)
  - Mood altered [None]
  - Irritability [None]
  - Mood swings [None]
  - Menstruation delayed [None]
  - Headache [None]
